FAERS Safety Report 17238608 (Version 1)
Quarter: 2020Q1

REPORT INFORMATION
  Report Type: Spontaneous
  Country: US (occurrence: US)
  Receive Date: 20200105
  Receipt Date: 20200105
  Transmission Date: 20200409
  Serious: Yes (Other)
  Sender: FDA-Public Use
  Company Number: None

PATIENT
  Age: 71 Year
  Sex: Female
  Weight: 75.15 kg

DRUGS (8)
  1. TRULICITY [Concomitant]
     Active Substance: DULAGLUTIDE
  2. HYDRALAZINE TABLETS [Suspect]
     Active Substance: HYDRALAZINE HYDROCHLORIDE
     Indication: HYPERTENSION
     Dosage: ?          QUANTITY:1 TABLET(S);?
     Route: 048
     Dates: start: 20191230, end: 20200105
  3. VITAMIN C [Concomitant]
     Active Substance: ASCORBIC ACID
  4. COREG [Concomitant]
     Active Substance: CARVEDILOL
  5. POTASSIUM [Concomitant]
     Active Substance: POTASSIUM
  6. LANOXIN [Concomitant]
     Active Substance: DIGOXIN
  7. DEMADEX [Concomitant]
     Active Substance: TORSEMIDE
  8. MULTIPLE VITAMINS [Concomitant]
     Active Substance: VITAMINS

REACTIONS (8)
  - Headache [None]
  - Lacrimation increased [None]
  - Neck pain [None]
  - Lip swelling [None]
  - Insomnia [None]
  - Paraesthesia [None]
  - Swelling face [None]
  - Eye swelling [None]

NARRATIVE: CASE EVENT DATE: 20191231
